FAERS Safety Report 8499919-4 (Version None)
Quarter: 2012Q3

REPORT INFORMATION
  Report Type: 
  Country: None (occurrence: None)
  Receive Date: 20120710
  Receipt Date: 20120705
  Transmission Date: 20120928
  Serious: Yes (Hospitalization)
  Sender: FDA-Public Use
  Company Number: PHHY2012JP058315

PATIENT
  Age: 80 Year
  Sex: Female

DRUGS (4)
  1. EXELON [Suspect]
     Indication: DEMENTIA ALZHEIMER'S TYPE
     Dosage: 4.5 MG, DAILY
     Route: 062
     Dates: start: 20120626, end: 20120627
  2. GRAMALIL [Concomitant]
     Dosage: 2.5 MG, UNK
     Route: 048
     Dates: start: 20120201, end: 20120705
  3. NITRAZEPAM [Concomitant]
     Dosage: 5 MG, UNK
     Route: 048
     Dates: start: 20120201, end: 20120705
  4. SEROQUEL [Concomitant]
     Dosage: 25 MG, UNK
     Route: 048
     Dates: start: 20120201, end: 20120705

REACTIONS (3)
  - SEDATION [None]
  - DECREASED ACTIVITY [None]
  - APHAGIA [None]
